FAERS Safety Report 7562681-3 (Version None)
Quarter: 2011Q2

REPORT INFORMATION
  Report Type: 
  Country: None (occurrence: None)
  Receive Date: 20110622
  Receipt Date: 20110616
  Transmission Date: 20111010
  Serious: Yes (Life-Threatening, Hospitalization)
  Sender: FDA-Public Use
  Company Number: FR-BRISTOL-MYERS SQUIBB COMPANY-15744238

PATIENT
  Age: 62 Year
  Sex: Male

DRUGS (3)
  1. CARBOPLATIN [Suspect]
     Indication: HEAD AND NECK CANCER
     Dosage: NO OF CYCLES:4,MOST RECENT INF ON 18FEB10,NO OF INF:8
     Route: 042
     Dates: start: 20100118, end: 20100218
  2. FLUOROURACIL [Suspect]
     Indication: HEAD AND NECK CANCER
     Dosage: ON THE 4 DAY CYCLE OF 21 DAY CYCLE.NO OF CYCLES:4,MOST RECENT INF ON 18FEB10,NO OF INF:8
     Route: 042
     Dates: start: 20100118, end: 20100218
  3. ERBITUX [Suspect]
     Indication: HEAD AND NECK CANCER
     Dosage: MOST RECENT INF ON 15FEB10,400MG/M2 ONCE ON 11JAN10,NO OF INF:6
     Route: 042
     Dates: start: 20100111, end: 20100215

REACTIONS (4)
  - GENERAL PHYSICAL HEALTH DETERIORATION [None]
  - SEPTIC SHOCK [None]
  - DYSPHAGIA [None]
  - DERMATITIS [None]
